FAERS Safety Report 7489257-0 (Version None)
Quarter: 2011Q2

REPORT INFORMATION
  Report Type: 
  Country: None (occurrence: None)
  Receive Date: 20110518
  Receipt Date: 20110513
  Transmission Date: 20111010
  Serious: Yes (Other)
  Sender: FDA-Public Use
  Company Number: GB-PFIZER INC-2011067850

PATIENT
  Age: 44 Year
  Sex: Male

DRUGS (1)
  1. LATANOPROST [Suspect]

REACTIONS (3)
  - INFLUENZA [None]
  - MYALGIA [None]
  - BLOOD CREATINE PHOSPHOKINASE INCREASED [None]
